FAERS Safety Report 7479721-2 (Version None)
Quarter: 2011Q2

REPORT INFORMATION
  Report Type: 
  Country: None (occurrence: None)
  Receive Date: 20110513
  Receipt Date: 20110502
  Transmission Date: 20111010
  Serious: Yes (Other)
  Sender: FDA-Public Use
  Company Number: US-ASTRAZENECA-2011SE00646

PATIENT
  Age: 41 Year
  Sex: Female
  Weight: 108.9 kg

DRUGS (21)
  1. SEROQUEL [Suspect]
     Indication: BIPOLAR II DISORDER
     Route: 048
     Dates: end: 20100101
  2. VIT B12 [Concomitant]
     Indication: IMMUNE SYSTEM DISORDER
     Dosage: DAILY
  3. VIT D [Concomitant]
     Dosage: DAILY
  4. SEROQUEL [Suspect]
     Route: 048
     Dates: start: 20100101
  5. SEROQUEL [Suspect]
     Route: 048
  6. CABUCHA [Concomitant]
     Indication: DYSPEPSIA
  7. ASPIRIN [Concomitant]
     Indication: CARDIAC DISORDER
  8. MULTI-VITAMIN [Concomitant]
     Indication: NUTRITIONAL SUPPORT
     Dosage: DAILY
  9. MAGNESIUM [Concomitant]
     Indication: IMMUNE SYSTEM DISORDER
     Dosage: DAILY
  10. SEROQUEL [Suspect]
     Indication: BIPOLAR I DISORDER
     Route: 048
     Dates: end: 20100101
  11. GABAPENTIN [Concomitant]
     Indication: AFFECTIVE DISORDER
     Dosage: DOSE- 300 MG DAILY, FREQUENCY - TWO TIMES DAILY.
  12. FISH OIL [Concomitant]
     Indication: HYPERCHOLESTEROLAEMIA
  13. SEROQUEL [Suspect]
     Route: 048
     Dates: start: 20100101
  14. BIRTH CONTROL PILL [Concomitant]
     Indication: MENSTRUAL DISORDER
     Dosage: DAILY
  15. SEROQUEL [Suspect]
     Route: 048
  16. ALPRASOLOME [Concomitant]
     Indication: ANXIETY
  17. ALPRASOLOME [Concomitant]
     Indication: PANIC DISORDER
  18. VITA C [Concomitant]
     Indication: IMMUNE SYSTEM DISORDER
  19. GREEN TEA [Concomitant]
     Indication: IMMUNE SYSTEM DISORDER
     Dosage: DAILY
  20. VICATIVE [Concomitant]
     Dosage: DAILY
  21. GARLIC [Concomitant]
     Indication: IMMUNE SYSTEM DISORDER
     Dosage: DAILY

REACTIONS (10)
  - BLOOD CHOLESTEROL INCREASED [None]
  - EMOTIONAL DISORDER [None]
  - INSOMNIA [None]
  - BLOOD GLUCOSE INCREASED [None]
  - DRUG DOSE OMISSION [None]
  - ARTHRALGIA [None]
  - HYPERSOMNIA [None]
  - WEIGHT INCREASED [None]
  - WITHDRAWAL SYNDROME [None]
  - FATIGUE [None]
